FAERS Safety Report 6477629-2 (Version None)
Quarter: 2009Q4

REPORT INFORMATION
  Report Type: 
  Country: None (occurrence: None)
  Receive Date: 20091207
  Receipt Date: 20091104
  Transmission Date: 20100525
  Serious: No
  Sender: FDA-Public Use
  Company Number: US-BAYER-200939515NA

PATIENT
  Age: 36 Year
  Sex: Male
  Weight: 68 kg

DRUGS (1)
  1. ULTRAVIST 300 [Suspect]
     Indication: COMPUTERISED TOMOGRAM ABDOMEN
     Dosage: TOTAL DAILY DOSE: 102 ML  UNIT DOSE: 200 ML
     Route: 042
     Dates: start: 20091104, end: 20091104

REACTIONS (3)
  - GLOSSODYNIA [None]
  - HEADACHE [None]
  - OROPHARYNGEAL PAIN [None]
